FAERS Safety Report 8255896-2 (Version None)
Quarter: 2012Q2

REPORT INFORMATION
  Report Type: 
  Country: None (occurrence: None)
  Receive Date: 20120403
  Receipt Date: 20120326
  Transmission Date: 20120825
  Serious: Yes (Other)
  Sender: FDA-Public Use
  Company Number: JP-VERTEX PHARMACEUTICALS INC.-AE-2012-004057

PATIENT
  Age: 59 Year
  Sex: Male

DRUGS (13)
  1. ACETAMINOPHEN [Concomitant]
     Route: 048
     Dates: start: 20120320
  2. VOLTAREN [Concomitant]
     Route: 048
  3. DEPAS [Concomitant]
  4. PEGINTERFERON [Concomitant]
     Indication: HEPATITIS C
     Route: 051
     Dates: start: 20120306, end: 20120313
  5. CARNACULIN [Concomitant]
     Route: 048
  6. HALCION [Concomitant]
  7. OLMESARTAN MEDOXOMIL [Concomitant]
  8. LOXONIN [Concomitant]
     Route: 061
  9. RIBAVIRIN [Concomitant]
     Indication: HEPATITIS C
     Route: 048
     Dates: start: 20120306, end: 20120309
  10. MUCOSTA [Concomitant]
  11. TELAVIC (TELAPREVIR) [Suspect]
     Indication: HEPATITIS C
     Route: 048
     Dates: start: 20120306, end: 20120315
  12. RIBAVIRIN [Concomitant]
     Route: 048
     Dates: start: 20120310, end: 20120315
  13. XALATAN [Concomitant]
     Route: 048

REACTIONS (2)
  - SOMNOLENCE [None]
  - RENAL FAILURE ACUTE [None]
